FAERS Safety Report 8209199-2 (Version None)
Quarter: 2012Q1

REPORT INFORMATION
  Report Type: 
  Country: None (occurrence: None)
  Receive Date: 20120314
  Receipt Date: 20120307
  Transmission Date: 20120608
  Serious: Yes (Life-Threatening, Hospitalization, Other)
  Sender: FDA-Public Use
  Company Number: PHHY2012DE020670

PATIENT
  Sex: Male
  Weight: 94 kg

DRUGS (15)
  1. RASILEZ [Suspect]
     Indication: HYPERTENSION
     Route: 048
  2. FLUVASTATIN SODIUM [Suspect]
     Indication: HYPERLIPIDAEMIA
     Dosage: 30 MG, DAILY
     Route: 048
     Dates: start: 20080101
  3. PROCORALAN [Suspect]
     Indication: CARDIAC FAILURE
     Dosage: 10 MG, DAILY
     Route: 048
     Dates: start: 20110101
  4. FALITHROM [Suspect]
     Indication: THROMBOPHLEBITIS SUPERFICIAL
     Dosage: 3 MG, DAILY
     Route: 048
     Dates: start: 20090101
  5. PLATELET AGGREGATION INHIBITORS [Concomitant]
  6. THIENOPYRIDINE [Concomitant]
  7. DIOVAN HCT [Suspect]
     Indication: CARDIAC FAILURE
     Dosage: 80 /25 MG, DAILY
     Dates: start: 20080101
  8. DIOVAN HCT [Suspect]
     Dosage: 160 /25 MG, DAILY
  9. BISOPROLOL FUMARATE [Suspect]
     Indication: CORONARY ARTERY DISEASE
     Dosage: 7.5 MG, DAILY
     Route: 048
     Dates: start: 20080101
  10. ANTICOAGULANTS [Concomitant]
     Route: 048
     Dates: start: 20110101
  11. RASILEZ [Suspect]
     Dosage: 150 MG, DAILY
     Dates: end: 20120117
  12. DIOVAN HCT [Suspect]
     Dosage: 320/25 MG, DAILY
  13. METFORMIN HCL [Suspect]
     Dosage: 2000 MG, DAILY
     Dates: start: 20080101
  14. TORSEMIDE [Suspect]
     Indication: CARDIAC FAILURE
     Dosage: 7.5 MG, DAILY
     Route: 048
     Dates: start: 20080101
  15. GLIMEPIRIDE [Suspect]
     Indication: DIABETES MELLITUS
     Dosage: 4 MG , DAILY
     Route: 048
     Dates: start: 20080101

REACTIONS (3)
  - HYPERTENSIVE CRISIS [None]
  - LEFT VENTRICULAR FAILURE [None]
  - CORONARY ARTERY THROMBOSIS [None]
